FAERS Safety Report 6394840-X (Version None)
Quarter: 2009Q4

REPORT INFORMATION
  Report Type: 
  Country: None (occurrence: None)
  Receive Date: 20091009
  Receipt Date: 20090930
  Transmission Date: 20100525
  Serious: Yes (Life-Threatening, Hospitalization)
  Sender: FDA-Public Use
  Company Number: CA-BAYER-200916900NA

PATIENT
  Age: 77 Year
  Sex: Male
  Weight: 85 kg

DRUGS (36)
  1. SORAFENIB [Suspect]
     Indication: ANGIOSARCOMA METASTATIC
     Dosage: TOTAL DAILY DOSE: 800 MG  UNIT DOSE: 200 MG
     Route: 048
     Dates: start: 20090225
  2. CYCLOPHOSPHAMIDE [Suspect]
     Indication: ANGIOSARCOMA METASTATIC
     Dosage: AS USED: 600 MG/M2
     Route: 042
     Dates: start: 20090224
  3. DOXORUBICIN HCL [Suspect]
     Indication: ANGIOSARCOMA METASTATIC
     Dosage: AS USED: 60 MG/M2
     Route: 042
     Dates: start: 20090225
  4. NOVODILTAZEM [Concomitant]
     Indication: HYPERTENSION
     Dosage: TOTAL DAILY DOSE: 30 MG
     Route: 048
     Dates: start: 20080101
  5. ASAPHEN [Concomitant]
     Indication: ANTICOAGULANT THERAPY
     Dosage: TOTAL DAILY DOSE: 80 MG
     Route: 048
     Dates: start: 19910101
  6. NOVOHYDRAZIDE [Concomitant]
     Indication: HYPERTENSION
     Dosage: TOTAL DAILY DOSE: 25 MG
     Route: 048
     Dates: start: 19910101
  7. ADALAT CC [Concomitant]
     Indication: HYPERTENSION
     Dosage: TOTAL DAILY DOSE: 20 MG
     Route: 048
     Dates: start: 19910101
  8. NOVOSIMVASTATIN [Concomitant]
     Indication: HYPERCHOLESTEROLAEMIA
     Dosage: TOTAL DAILY DOSE: 40 MG
     Route: 048
     Dates: start: 19950101
  9. FLOMAX [Concomitant]
     Indication: BENIGN PROSTATIC HYPERPLASIA
     Dosage: TOTAL DAILY DOSE: 0.4 MG
     Route: 048
     Dates: start: 20010101
  10. NOVOPUROL [Concomitant]
     Indication: GOUT
     Dosage: TOTAL DAILY DOSE: 200 MG
     Route: 048
     Dates: start: 20020101
  11. VASOTEC [Concomitant]
     Indication: HYPERTENSION
     Dosage: TOTAL DAILY DOSE: 20 MG
     Route: 048
     Dates: start: 19910101
  12. OXAZEPAM [Concomitant]
     Indication: INSOMNIA
     Dosage: TOTAL DAILY DOSE: 15 MG
     Route: 048
     Dates: start: 19910101
  13. SYNTHROID [Concomitant]
     Indication: HYPOTHYROIDISM
     Dosage: TOTAL DAILY DOSE: 0.125 MG
     Route: 048
     Dates: start: 20020101
  14. NITROGLYCERIN [Concomitant]
     Indication: NITRATE COMPOUND THERAPY
     Dosage: TOTAL DAILY DOSE: 0.2 MG
     Route: 062
     Dates: start: 20030101
  15. SYMBICORT [Concomitant]
     Indication: ASTHMA
     Route: 055
     Dates: start: 20070101
  16. APOTEX [Concomitant]
     Indication: ASTHMA
     Dosage: TOTAL DAILY DOSE: 2 PUFF
     Route: 055
     Dates: start: 20070101
  17. FLAMAZINE [Concomitant]
     Indication: SKIN ULCER
     Route: 061
     Dates: start: 20090217
  18. ROLAIDS [Concomitant]
     Indication: DYSPEPSIA
     Dosage: 2 TABLETS
     Dates: start: 20090224
  19. COLACE [Concomitant]
     Indication: CONSTIPATION
     Dosage: TOTAL DAILY DOSE: 100 MG
     Route: 048
     Dates: start: 20090311
  20. COLACE [Concomitant]
     Dosage: TOTAL DAILY DOSE: 100 MG
     Route: 048
     Dates: start: 20090303, end: 20090311
  21. DULCOLAX [Concomitant]
     Indication: CONSTIPATION
     Route: 048
     Dates: start: 20090311
  22. DULCOLAX [Concomitant]
     Route: 048
     Dates: start: 20090303, end: 20090311
  23. SODIUM CHLORIDE [Concomitant]
     Indication: FLUID REPLACEMENT
     Dosage: TOTAL DAILY DOSE: 1 L
     Route: 042
     Dates: start: 20090324, end: 20090324
  24. SODIUM CHLORIDE [Concomitant]
     Dosage: TOTAL DAILY DOSE: 1 L
     Route: 042
     Dates: start: 20090304, end: 20090304
  25. SODIUM CHLORIDE [Concomitant]
     Dosage: TOTAL DAILY DOSE: 1 L
     Route: 042
     Dates: start: 20090310, end: 20090311
  26. DECADRON [Concomitant]
     Indication: PREMEDICATION
     Dosage: TOTAL DAILY DOSE: 10 MG
     Route: 042
     Dates: start: 20090317, end: 20090318
  27. DECADRON [Concomitant]
     Dosage: TOTAL DAILY DOSE: 10 MG
     Route: 042
     Dates: start: 20090224, end: 20090225
  28. KYTRIL [Concomitant]
     Indication: PREMEDICATION
     Dosage: TOTAL DAILY DOSE: 1 MG
     Route: 042
     Dates: start: 20090317, end: 20090318
  29. KYTRIL [Concomitant]
     Dosage: TOTAL DAILY DOSE: 1 MG
     Route: 042
     Dates: start: 20090224, end: 20090225
  30. FUCIDINE CAP [Concomitant]
     Indication: DRY SKIN
     Route: 061
     Dates: start: 20090317
  31. ACETYLSALICYLIC ACID [Concomitant]
     Indication: PROPHYLAXIS
     Dosage: AS USED: 81 MG
     Route: 048
     Dates: start: 20090327
  32. K DUR [Concomitant]
     Indication: BLOOD POTASSIUM DECREASED
     Dosage: 1 TAB X 3
     Route: 048
     Dates: start: 20090329, end: 20090329
  33. HYDROCHLOROTHIAZIDE [Concomitant]
     Indication: HYPERTENSION
     Route: 048
     Dates: start: 20090327
  34. MAGNESIUM SULFATE [Concomitant]
     Indication: BLOOD MAGNESIUM DECREASED
     Dosage: TOTAL DAILY DOSE: 5 G
     Route: 042
     Dates: start: 20090329, end: 20090329
  35. PHOSPHATE [Concomitant]
     Indication: BLOOD PHOSPHORUS DECREASED
     Dosage: TOTAL DAILY DOSE: 15 ML
     Route: 042
     Dates: start: 20090329, end: 20090329
  36. TYLENOL (CAPLET) [Concomitant]
     Indication: PAIN
     Route: 048
     Dates: start: 20090327

REACTIONS (4)
  - FEBRILE NEUTROPENIA [None]
  - NEUTROPENIA [None]
  - PNEUMONIA [None]
  - PYREXIA [None]
